FAERS Safety Report 18761060 (Version 4)
Quarter: 2021Q1

REPORT INFORMATION
  Report Type: Spontaneous
  Country: JP (occurrence: JP)
  Receive Date: 20210119
  Receipt Date: 20210302
  Transmission Date: 20210419
  Serious: Yes (Hospitalization)
  Sender: FDA-Public Use
  Company Number: JP-JNJFOC-20210124066

PATIENT
  Age: 4 Decade
  Sex: Male

DRUGS (4)
  1. PREDNISOLONE. [Concomitant]
     Active Substance: PREDNISOLONE
     Route: 048
  2. PREDNISOLONE. [Concomitant]
     Active Substance: PREDNISOLONE
     Indication: COLITIS ULCERATIVE
     Route: 048
     Dates: start: 20201208
  3. SIMPONI [Suspect]
     Active Substance: GOLIMUMAB
     Indication: COLITIS ULCERATIVE
     Dosage: DOSE UNKNOWN, GOLIMUMAB (GENETICAL RECOMBINATION):50MG
     Route: 058
     Dates: start: 20201221, end: 20210106
  4. AZATHIOPRINE. [Concomitant]
     Active Substance: AZATHIOPRINE
     Indication: COLITIS ULCERATIVE
     Dates: start: 20210108

REACTIONS (1)
  - Depersonalisation/derealisation disorder [Recovered/Resolved]

NARRATIVE: CASE EVENT DATE: 20210104
